FAERS Safety Report 12423216 (Version 1)
Quarter: 2016Q2

REPORT INFORMATION
  Report Type: Spontaneous
  Country: US (occurrence: None)
  Receive Date: 20160531
  Receipt Date: 20160531
  Transmission Date: 20160815
  Serious: No
  Sender: FDA-Public Use
  Company Number: None

PATIENT
  Age: 62 Year
  Sex: Male
  Weight: 74.84 kg

DRUGS (2)
  1. LIDOCAINE PATCH [Suspect]
     Active Substance: LIDOCAINE
     Indication: INTERVERTEBRAL DISC PROTRUSION
     Dosage: 3 PATCH(ES) ONCE A DAY APPLIED AS MEDICATED PATCH TO SKIN
     Dates: start: 20100501
  2. LIDOCAINE PATCH [Suspect]
     Active Substance: LIDOCAINE
     Indication: SCIATICA
     Dosage: 3 PATCH(ES) ONCE A DAY APPLIED AS MEDICATED PATCH TO SKIN
     Dates: start: 20100501

REACTIONS (3)
  - Product quality issue [None]
  - Product substitution issue [None]
  - Skin disorder [None]

NARRATIVE: CASE EVENT DATE: 20160529
